FAERS Safety Report 8315586-4 (Version None)
Quarter: 2012Q2

REPORT INFORMATION
  Report Type: 
  Country: None (occurrence: None)
  Receive Date: 20120426
  Receipt Date: 20120416
  Transmission Date: 20120825
  Serious: Yes (Hospitalization, Other)
  Sender: FDA-Public Use
  Company Number: DE-ROCHE-1050068

PATIENT
  Age: 48 Year
  Sex: Female
  Weight: 57 kg

DRUGS (3)
  1. VEMURAFENIB [Suspect]
     Route: 048
     Dates: start: 20110416
  2. VEMURAFENIB [Suspect]
     Indication: METASTATIC MALIGNANT MELANOMA
     Dosage: ROUTE, FORM, FREQUENCY: AS PER PROTOCOL
     Route: 048
     Dates: start: 20120118, end: 20120317
  3. VEMURAFENIB [Suspect]
     Dosage: ROUTE, FORM, FREQUENCY: AS PER PROTOCOL
     Route: 048
     Dates: start: 20120331, end: 20120410

REACTIONS (3)
  - PNEUMONIA [None]
  - SQUAMOUS CELL CARCINOMA OF SKIN [None]
  - KERATOACANTHOMA [None]
